FAERS Safety Report 22904698 (Version 4)
Quarter: 2025Q4

REPORT INFORMATION
  Report Type: Spontaneous
  Country: PA (occurrence: PA)
  Receive Date: 20230905
  Receipt Date: 20251201
  Transmission Date: 20260118
  Serious: No
  Sender: SANDOZ
  Company Number: PA-002147023-NVSC2023PA109924

PATIENT
  Age: 68 Year
  Sex: Female

DRUGS (4)
  1. KISQALI [Suspect]
     Active Substance: RIBOCICLIB SUCCINATE
     Dosage: 400 MG, QD
     Route: 048
  2. KISQALI [Suspect]
     Active Substance: RIBOCICLIB SUCCINATE
     Indication: Breast cancer metastatic
     Dosage: 600 MG, QD
     Route: 048
     Dates: start: 202201, end: 20230503
  3. ROSUVASTATIN [Suspect]
     Active Substance: ROSUVASTATIN
     Indication: Product used for unknown indication
     Dosage: UNK
     Route: 065
  4. ANASTROZOLE [Concomitant]
     Active Substance: ANASTROZOLE
     Indication: Breast cancer metastatic
     Dosage: 1 DOSAGE FORM, TABLET
     Route: 065

REACTIONS (10)
  - Hyperhidrosis [Unknown]
  - Weight increased [Unknown]
  - Taste disorder [Unknown]
  - Skin discolouration [Recovering/Resolving]
  - Pigmentation disorder [Recovering/Resolving]
  - Vein disorder [Unknown]
  - Blood cholesterol increased [Unknown]
  - Feeling hot [Unknown]
  - Haemoglobin decreased [Unknown]
  - Pruritus [Unknown]

NARRATIVE: CASE EVENT DATE: 20230503
